FAERS Safety Report 25834813 (Version 1)
Quarter: 2025Q3

REPORT INFORMATION
  Report Type: Spontaneous
  Country: KR (occurrence: KR)
  Receive Date: 20250923
  Receipt Date: 20250923
  Transmission Date: 20251020
  Serious: Yes (Other)
  Sender: UCB
  Company Number: KR-UCBSA-2025058885

PATIENT
  Sex: Female

DRUGS (1)
  1. KEPPRA [Suspect]
     Active Substance: LEVETIRACETAM
     Indication: Partial seizures

REACTIONS (1)
  - Substance-induced psychotic disorder [Recovered/Resolved]
